FAERS Safety Report 11574354 (Version 1)
Quarter: 2015Q3

REPORT INFORMATION
  Report Type: Spontaneous
  Country: FR (occurrence: None)
  Receive Date: 20150928
  Receipt Date: 20150928
  Transmission Date: 20151125
  Serious: Yes (Other)
  Sender: FDA-Public Use
  Company Number: 2015FR0500

PATIENT
  Sex: Female

DRUGS (2)
  1. KINERET [Suspect]
     Active Substance: ANAKINRA
     Indication: FAMILIAL MEDITERRANEAN FEVER
     Route: 058
     Dates: start: 201503, end: 20150826
  2. COLCHINE (COLCHICINE) [Concomitant]

REACTIONS (5)
  - Familial mediterranean fever [None]
  - Pregnancy [None]
  - Abortion spontaneous [None]
  - Condition aggravated [None]
  - Maternal exposure during pregnancy [None]

NARRATIVE: CASE EVENT DATE: 20150914
